FAERS Safety Report 13195040 (Version 1)
Quarter: 2017Q1

REPORT INFORMATION
  Report Type: Spontaneous
  Country: US (occurrence: US)
  Receive Date: 20170207
  Receipt Date: 20170207
  Transmission Date: 20170428
  Serious: Yes (Hospitalization, Other)
  Sender: FDA-Public Use
  Company Number: US-AMGEN-USASP2017018578

PATIENT
  Age: 61 Year
  Sex: Male

DRUGS (4)
  1. TAXOL [Concomitant]
     Active Substance: PACLITAXEL
     Indication: BREAST CANCER
  2. ADRIAMYCIN [Concomitant]
     Active Substance: DOXORUBICIN HYDROCHLORIDE
     Indication: BREAST CANCER
  3. CYCLOPHOSPHAMIDE. [Concomitant]
     Active Substance: CYCLOPHOSPHAMIDE
     Indication: BREAST CANCER
  4. NEULASTA [Suspect]
     Active Substance: PEGFILGRASTIM
     Indication: PRODUCT USED FOR UNKNOWN INDICATION
     Dosage: UNK
     Route: 065

REACTIONS (5)
  - Febrile neutropenia [Unknown]
  - White blood cell count abnormal [Recovered/Resolved]
  - Platelet count decreased [Recovered/Resolved]
  - Malaise [Unknown]
  - Feeling cold [Unknown]

NARRATIVE: CASE EVENT DATE: 201612
